FAERS Safety Report 19647971 (Version 1)
Quarter: 2021Q3

REPORT INFORMATION
  Report Type: Report from Study
  Country: US (occurrence: US)
  Receive Date: 20210802
  Receipt Date: 20210802
  Transmission Date: 20211014
  Serious: Yes (Other)
  Sender: FDA-Public Use
  Company Number: US-JNJFOC-20210725348

PATIENT
  Sex: Female

DRUGS (1)
  1. SELEXIPAG [Suspect]
     Active Substance: SELEXIPAG
     Indication: PRODUCT USED FOR UNKNOWN INDICATION
     Route: 048

REACTIONS (6)
  - Liver disorder [Unknown]
  - Hypoacusis [Unknown]
  - Malaise [Unknown]
  - Disturbance in attention [Unknown]
  - Urinary tract infection [Unknown]
  - Pain [Unknown]
